FAERS Safety Report 6211729-7 (Version None)
Quarter: 2009Q2

REPORT INFORMATION
  Report Type: 
  Country: None (occurrence: None)
  Receive Date: 20090602
  Receipt Date: 20090519
  Transmission Date: 20091009
  Serious: Yes (Other)
  Sender: FDA-Public Use
  Company Number: CA-PFIZER INC-2009191828

PATIENT
  Age: 64 Year

DRUGS (15)
  1. CHAMPIX [Suspect]
     Dosage: 0.5 MG, 1X/DAY
     Route: 048
     Dates: start: 20090328, end: 20090330
  2. CELEBREX [Concomitant]
     Dosage: UNK
  3. LIPITOR [Concomitant]
     Dosage: 80 MG, 1X/DAY
  4. LYRICA [Concomitant]
  5. METFORMIN HYDROCHLORIDE [Concomitant]
     Dosage: 1000 UNK, 2X/DAY
  6. AMIODARONE [Concomitant]
     Dosage: 300 MG, 1X/DAY
  7. WARFARIN SODIUM [Concomitant]
     Dosage: 4 MG, 1X/DAY
  8. PARIET [Concomitant]
     Dosage: 20 MG, 1X/DAY
  9. COLACE [Concomitant]
  10. EFFEXOR [Concomitant]
     Dosage: 37.5 MG, 1X/DAY
  11. ATACAND [Concomitant]
     Dosage: 16 MG, 1X/DAY
  12. HYDROXYCHLOROQUINE SULFATE [Concomitant]
     Indication: ARTHRITIS
     Dosage: 200 MG, 2X/DAY
  13. HYDROXYCHLOROQUINE SULFATE [Concomitant]
     Indication: PSORIASIS
  14. METOPROLOL [Concomitant]
     Dosage: 100 MG, 2X/DAY
  15. PLAVIX [Concomitant]
     Dosage: 75 UNK, 1X/DAY

REACTIONS (2)
  - COUGH [None]
  - HAEMOPTYSIS [None]
